FAERS Safety Report 13186237 (Version 1)
Quarter: 2017Q1

REPORT INFORMATION
  Report Type: Spontaneous
  Country: FR (occurrence: FR)
  Receive Date: 20170204
  Receipt Date: 20170204
  Transmission Date: 20170428
  Serious: Yes (Hospitalization, Other)
  Sender: FDA-Public Use
  Company Number: FR-BRISTOL-MYERS SQUIBB COMPANY-BMS-2017-007907

PATIENT
  Age: 51 Year
  Sex: Female

DRUGS (4)
  1. PENTASA [Suspect]
     Active Substance: MESALAMINE
     Indication: PROCTITIS ULCERATIVE
     Dosage: 1 G, QD
     Route: 054
     Dates: start: 20161223, end: 20170106
  2. AMOXICILLIN                        /00249603/ [Suspect]
     Active Substance: AMOXICILLIN SODIUM
     Indication: BRONCHITIS
     Dosage: 1 G, TID
     Route: 048
     Dates: start: 20161229, end: 20170106
  3. OPDIVO [Suspect]
     Active Substance: NIVOLUMAB
     Indication: MALIGNANT MELANOMA
     Dosage: 3 MG/KG, Q2WK
     Route: 042
     Dates: start: 20160822, end: 20170103
  4. ACETYLCYSTEINE. [Suspect]
     Active Substance: ACETYLCYSTEINE
     Indication: BRONCHITIS
     Dosage: 200 MG, TID
     Route: 065
     Dates: start: 20161229, end: 20170106

REACTIONS (4)
  - Rash maculo-papular [Recovered/Resolved]
  - Biopsy [Unknown]
  - Lymphopenia [Recovered/Resolved]
  - Proctitis [Recovered/Resolved]

NARRATIVE: CASE EVENT DATE: 201612
